FAERS Safety Report 8280716-X (Version None)
Quarter: 2012Q2

REPORT INFORMATION
  Report Type: 
  Country: None (occurrence: None)
  Receive Date: 20120412
  Receipt Date: 20120209
  Transmission Date: 20120825
  Serious: No
  Sender: FDA-Public Use
  Company Number: US-ASTRAZENECA-2011SE73059

PATIENT
  Age: 60 Year
  Sex: Female
  Weight: 44 kg

DRUGS (2)
  1. PENICILLIN [Suspect]
     Route: 065
  2. NEXIUM [Suspect]
     Route: 048

REACTIONS (7)
  - NASOPHARYNGITIS [None]
  - COLITIS [None]
  - GASTROOESOPHAGEAL REFLUX DISEASE [None]
  - PRURITUS [None]
  - VAGINAL INFECTION [None]
  - BLOOD URINE PRESENT [None]
  - MYALGIA [None]
